FAERS Safety Report 14258216 (Version 1)
Quarter: 2017Q4

REPORT INFORMATION
  Report Type: Spontaneous
  Country: NL (occurrence: NL)
  Receive Date: 20171207
  Receipt Date: 20171207
  Transmission Date: 20180321
  Serious: Yes (Death)
  Sender: FDA-Public Use
  Company Number: NL-CIPLA LTD.-2017NL22454

PATIENT

DRUGS (3)
  1. EPIRUBICIN [Suspect]
     Active Substance: EPIRUBICIN
     Indication: OESOPHAGEAL CARCINOMA
     Dosage: UNK
     Route: 065
  2. CISPLATIN. [Suspect]
     Active Substance: CISPLATIN
     Indication: OESOPHAGEAL CARCINOMA
     Dosage: UNK
     Route: 065
  3. CAPECITABINE. [Suspect]
     Active Substance: CAPECITABINE
     Indication: OESOPHAGEAL CARCINOMA
     Dosage: UNK
     Route: 065

REACTIONS (4)
  - Thrombocytopenia [Fatal]
  - Diarrhoea [Fatal]
  - Mucosal inflammation [Fatal]
  - Leukopenia [Fatal]
